FAERS Safety Report 20991825 (Version 1)
Quarter: 2022Q2

REPORT INFORMATION
  Report Type: Spontaneous
  Country: CZ (occurrence: CZ)
  Receive Date: 20220622
  Receipt Date: 20220622
  Transmission Date: 20220721
  Serious: Yes (Other)
  Sender: FDA-Public Use
  Company Number: None

PATIENT
  Age: 52 Year
  Sex: Female
  Weight: 108 kg

DRUGS (2)
  1. HERCEPTIN [Suspect]
     Active Substance: TRASTUZUMAB
     Indication: Breast cancer
     Dosage: 3 WEEK CYCLE IN COMBINATION WITH PERJETA
     Route: 042
     Dates: start: 20210305, end: 20220530
  2. PERJETA [Suspect]
     Active Substance: PERTUZUMAB
     Indication: Breast cancer
     Dosage: 3 WEEK APPLICATION CYCLE IN COMBINATION WITH HERCEPTIN
     Route: 042
     Dates: start: 20210305, end: 20220530

REACTIONS (3)
  - Oedema [Recovering/Resolving]
  - Swelling face [Recovered/Resolved]
  - Swelling [Recovered/Resolved]

NARRATIVE: CASE EVENT DATE: 20220601
